FAERS Safety Report 6623885-7 (Version None)
Quarter: 2010Q1

REPORT INFORMATION
  Report Type: 
  Country: None (occurrence: None)
  Receive Date: 20100310
  Receipt Date: 20100304
  Transmission Date: 20100710
  Serious: Yes (Hospitalization)
  Sender: FDA-Public Use
  Company Number: AU-PERRIGO-10AU007596

PATIENT
  Age: 68 Year
  Sex: Female

DRUGS (9)
  1. SIMVASTATIN RX 80 MG 292 [Suspect]
     Indication: CARDIAC DISORDER
     Dosage: 80 MG, QD
     Route: 048
     Dates: start: 20050101, end: 20080801
  2. CLARITHROMYCIN [Suspect]
     Indication: LOWER RESPIRATORY TRACT INFECTION
     Dosage: 250 MG, BID
     Route: 048
     Dates: start: 20080801, end: 20080801
  3. QUETIAPINE [Concomitant]
     Indication: MENTAL DISORDER
     Dosage: 25 MG AM, 100 MG PM
     Route: 048
  4. LITHIUM CARBONATE [Concomitant]
     Indication: MENTAL DISORDER
     Dosage: 250 MG, BID
     Route: 048
  5. ASPIRIN [Concomitant]
     Indication: CARDIAC DISORDER
     Dosage: 100 MG, QD
     Route: 048
  6. ESCITALOPRAM [Concomitant]
     Indication: MENTAL DISORDER
     Dosage: 20 MG, QD
     Route: 048
  7. DIAZEPAM [Concomitant]
     Indication: MENTAL DISORDER
     Dosage: 2 MG, QD
     Route: 048
  8. PERINDOPRIL [Concomitant]
     Indication: CARDIAC DISORDER
     Dosage: 10 MG, QD
     Route: 048
  9. DIGOXIN [Concomitant]
     Indication: CARDIAC DISORDER
     Dosage: 62.5 UG, QD
     Route: 048

REACTIONS (11)
  - BLOOD CREATINE PHOSPHOKINASE INCREASED [None]
  - CLONUS [None]
  - CONFUSIONAL STATE [None]
  - DELIRIUM [None]
  - DRUG INTERACTION [None]
  - EYE DISORDER [None]
  - HYPERTONIA [None]
  - NEUROLEPTIC MALIGNANT SYNDROME [None]
  - PYREXIA [None]
  - TACHYCARDIA [None]
  - WHITE BLOOD CELL COUNT INCREASED [None]
